FAERS Safety Report 9266062 (Version 1)
Quarter: 2013Q2

REPORT INFORMATION
  Report Type: Spontaneous
  Country: BR (occurrence: BR)
  Receive Date: 20130501
  Receipt Date: 20130501
  Transmission Date: 20140414
  Serious: Yes (Other)
  Sender: FDA-Public Use
  Company Number: BR-AMGEN-BRASP2013030012

PATIENT
  Age: 71 Year
  Sex: Female
  Weight: 103 kg

DRUGS (5)
  1. ENBREL [Suspect]
     Indication: RHEUMATOID ARTHRITIS
     Dosage: 50 MG, ONCE WEEKLY
     Route: 058
     Dates: start: 20130203
  2. PURAN T4 [Concomitant]
     Indication: HYPOTHYROIDISM
     Dosage: EVERY DAY
  3. LOSARTAN [Concomitant]
     Indication: HYPERTENSION
     Dosage: EVERY DAY
  4. AMLODIPINE [Concomitant]
     Indication: HYPERTENSION
     Dosage: EVERY DAY
  5. ALDACTONE                          /00006201/ [Concomitant]
     Indication: HYPERTENSION
     Dosage: EVERY DAY

REACTIONS (5)
  - Asthenia [Unknown]
  - Decreased appetite [Unknown]
  - Urine analysis abnormal [Unknown]
  - Urinary tract infection [Unknown]
  - Influenza [Unknown]
